FAERS Safety Report 8114679-4 (Version None)
Quarter: 2012Q1

REPORT INFORMATION
  Report Type: 
  Country: None (occurrence: None)
  Receive Date: 20120206
  Receipt Date: 20120201
  Transmission Date: 20120608
  Serious: Yes (Death, Other)
  Sender: FDA-Public Use
  Company Number: JP-PFIZER INC-2012028033

PATIENT
  Age: 90 Year
  Sex: Male

DRUGS (1)
  1. RIFABUTIN [Suspect]
     Route: 048

REACTIONS (2)
  - DEATH [None]
  - ASTHENIA [None]
